FAERS Safety Report 16909932 (Version 2)
Quarter: 2019Q4

REPORT INFORMATION
  Report Type: Spontaneous
  Country: DE (occurrence: DE)
  Receive Date: 20191011
  Receipt Date: 20191218
  Transmission Date: 20200122
  Serious: Yes (Hospitalization, Other)
  Sender: FDA-Public Use
  Company Number: DE-PURDUE PHARMA-GBR-2019-0071384

PATIENT
  Age: 26 Year
  Sex: Male
  Weight: 58 kg

DRUGS (9)
  1. SUBSTITOL [Suspect]
     Active Substance: MORPHINE SULFATE
     Dosage: 360 MG, DAILY
     Route: 048
     Dates: start: 20180831
  2. SUBSTITOL [Suspect]
     Active Substance: MORPHINE SULFATE
     Dosage: 1 OT, DAILY
     Route: 048
     Dates: start: 20180831
  3. QUETIAPINE FUMARATE. [Suspect]
     Active Substance: QUETIAPINE FUMARATE
     Indication: SCHIZOAFFECTIVE DISORDER
     Dosage: 1 OT, DAILY
     Route: 048
     Dates: start: 20180824
  4. SUBSTITOL [Suspect]
     Active Substance: MORPHINE SULFATE
     Indication: DRUG DEPENDENCE
     Dosage: 360 MG, DAILY
     Route: 048
     Dates: start: 20190913
  5. LEVAMISOLE HYDROCHLORIDE [Concomitant]
     Active Substance: LEVAMISOLE HYDROCHLORIDE
     Indication: PRODUCT USED FOR UNKNOWN INDICATION
     Dosage: 10 ML, UNK
     Route: 065
     Dates: start: 20190919, end: 20190924
  6. CLARITHROMYCIN. [Concomitant]
     Active Substance: CLARITHROMYCIN
     Indication: PRODUCT USED FOR UNKNOWN INDICATION
     Dosage: 1500 MG, UNK
     Route: 065
     Dates: start: 20190917, end: 20190917
  7. PANTOPRAZOL [Concomitant]
     Active Substance: PANTOPRAZOLE SODIUM
     Indication: PRODUCT USED FOR UNKNOWN INDICATION
     Dosage: 20 MG, UNK
     Route: 065
     Dates: start: 20190917, end: 20190920
  8. METHYLENEDIOXYMETHAMPHETAMINE [Suspect]
     Active Substance: MIDOMAFETAMINE
     Indication: PRODUCT USED FOR UNKNOWN INDICATION
     Dosage: UNK
     Route: 065
  9. CLINDAMYCIN. [Concomitant]
     Active Substance: CLINDAMYCIN
     Indication: PRODUCT USED FOR UNKNOWN INDICATION
     Dosage: 900 MG, UNK
     Route: 065
     Dates: start: 20190918, end: 20190920

REACTIONS (5)
  - Agitation [Unknown]
  - Blood glucose increased [Unknown]
  - Anamnestic reaction [Recovered/Resolved]
  - Vomiting [Unknown]
  - Poisoning [Not Recovered/Not Resolved]

NARRATIVE: CASE EVENT DATE: 20190913
